FAERS Safety Report 8558412-0 (Version None)
Quarter: 2012Q3

REPORT INFORMATION
  Report Type: 
  Country: None (occurrence: None)
  Receive Date: 20120801
  Receipt Date: 20120719
  Transmission Date: 20120928
  Serious: No
  Sender: FDA-Public Use
  Company Number: US-ASTRAZENECA-2011SE31798

PATIENT
  Age: 63 Year
  Sex: Female

DRUGS (6)
  1. MELOXICAM [Concomitant]
  2. PRILOSEC [Suspect]
     Route: 048
  3. VENTOLIN HFA [Concomitant]
  4. MICAEDIS [Concomitant]
  5. NEXIUM [Suspect]
     Route: 048
  6. SIMVASTATIN [Concomitant]

REACTIONS (9)
  - MALAISE [None]
  - SLEEP DISORDER DUE TO A GENERAL MEDICAL CONDITION [None]
  - VOMITING [None]
  - DYSPEPSIA [None]
  - DRUG DOSE OMISSION [None]
  - DRUG INEFFECTIVE [None]
  - OROPHARYNGEAL PAIN [None]
  - GASTROOESOPHAGEAL REFLUX DISEASE [None]
  - APHAGIA [None]
